FAERS Safety Report 12833176 (Version 3)
Quarter: 2016Q4

REPORT INFORMATION
  Report Type: Report from Study
  Country: None (occurrence: NL)
  Receive Date: 20161010
  Receipt Date: 20161010
  Transmission Date: 20170207
  Serious: Yes (Other)
  Sender: FDA-Public Use
  Company Number: NL-ABBVIE-16P-114-1749033-00

PATIENT
  Sex: Female

DRUGS (1)
  1. LUCRIN DEPOT [Suspect]
     Active Substance: LEUPROLIDE ACETATE
     Indication: ENDOMETRIOSIS
     Route: 050
     Dates: start: 20151109

REACTIONS (2)
  - Dental caries [Unknown]
  - Tooth disorder [Not Recovered/Not Resolved]
